FAERS Safety Report 4999489-9 (Version None)
Quarter: 2006Q2

REPORT INFORMATION
  Report Type: 
  Country: None (occurrence: None)
  Receive Date: 20060509
  Receipt Date: 20060426
  Transmission Date: 20061013
  Serious: Yes (Other)
  Sender: FDA-Public Use
  Company Number: 2006020732

PATIENT
  Sex: Female

DRUGS (1)
  1. MACUGEN [Suspect]
     Indication: ILL-DEFINED DISORDER
     Dates: start: 20050127, end: 20051203

REACTIONS (18)
  - ARTHRITIS [None]
  - BRONCHITIS [None]
  - CAROTID ARTERY OCCLUSION [None]
  - CHEST PAIN [None]
  - COUGH [None]
  - DERMATITIS CONTACT [None]
  - DIARRHOEA [None]
  - DYSPEPSIA [None]
  - HAEMATEMESIS [None]
  - HAEMOPTYSIS [None]
  - HAEMORRHAGE [None]
  - HYPOACUSIS [None]
  - LUNG ADENOCARCINOMA [None]
  - PLEURAL EFFUSION [None]
  - PULMONARY HAEMORRHAGE [None]
  - PURULENCE [None]
  - RASH [None]
  - VITREOUS FLOATERS [None]
